FAERS Safety Report 22843858 (Version 7)
Quarter: 2023Q4

REPORT INFORMATION
  Report Type: Report from Study
  Country: US (occurrence: None)
  Receive Date: 20230821
  Receipt Date: 20231115
  Transmission Date: 20240109
  Serious: Yes (Hospitalization)
  Sender: FDA-Public Use
  Company Number: US-ROCHE-3407487

PATIENT
  Age: 50 Year
  Sex: Male

DRUGS (6)
  1. ATEZOLIZUMAB [Suspect]
     Active Substance: ATEZOLIZUMAB
     Indication: Colorectal cancer
     Dosage: ON 19/JUL/2023, MOST RECENT DOSE OF ATEZOLIZUMAB PRIOR TO THE EVENTS ONSET
     Route: 041
     Dates: start: 20230719
  2. ZANZALINTINIB [Suspect]
     Active Substance: ZANZALINTINIB
     Indication: Colorectal cancer
     Dosage: ON 30/JUL/2023, THE PATIENT RECEIVED THE MOST RECENT DOSE OF XL092 PRIOR TO THE ONSET OF FEVER.?ON 0
     Route: 048
     Dates: start: 20230719
  3. COLACE [Concomitant]
     Active Substance: DOCUSATE SODIUM
     Dates: start: 20190319
  4. COMPAZINE [Concomitant]
     Active Substance: PROCHLORPERAZINE MALEATE
     Dates: start: 20190424
  5. DOXYCYCLINE [Concomitant]
     Active Substance: DOXYCYCLINE
     Dates: start: 20220209
  6. REGLAN [Concomitant]
     Active Substance: METOCLOPRAMIDE HYDROCHLORIDE
     Dates: start: 20210407

REACTIONS (2)
  - Pyrexia [Recovered/Resolved]
  - Thrombocytopenia [Recovered/Resolved]

NARRATIVE: CASE EVENT DATE: 20230731
